FAERS Safety Report 13682355 (Version 1)
Quarter: 2017Q2

REPORT INFORMATION
  Report Type: Spontaneous
  Country: US (occurrence: US)
  Receive Date: 20170622
  Receipt Date: 20170622
  Transmission Date: 20170830
  Serious: No
  Sender: FDA-Public Use
  Company Number: None

PATIENT
  Age: 40 Year
  Sex: Female

DRUGS (1)
  1. BOTOX [Suspect]
     Active Substance: ONABOTULINUMTOXINA
     Indication: MIGRAINE
     Dosage: 155 UNITS, EVERY 90 DAYS
     Route: 030
     Dates: start: 20150901

REACTIONS (4)
  - Neck pain [None]
  - Musculoskeletal disorder [None]
  - Back pain [None]
  - Asthenia [None]

NARRATIVE: CASE EVENT DATE: 20170619
